FAERS Safety Report 18298915 (Version 3)
Quarter: 2021Q1

REPORT INFORMATION
  Report Type: Spontaneous
  Country: RU (occurrence: RU)
  Receive Date: 20200922
  Receipt Date: 20210105
  Transmission Date: 20210419
  Serious: Yes (Other)
  Sender: FDA-Public Use
  Company Number: RU-SA-2020SA254834

PATIENT

DRUGS (2)
  1. VITAMINS NOS [Concomitant]
     Active Substance: VITAMINS
     Indication: PREGNANCY
     Dosage: 1 DF, QD
     Route: 048
     Dates: start: 202007
  2. CLEXANE [Suspect]
     Active Substance: ENOXAPARIN SODIUM
     Indication: HYPERCOAGULATION
     Dosage: 0.4 ML, QD
     Route: 058
     Dates: start: 202007

REACTIONS (4)
  - Product availability issue [Unknown]
  - Exposure during pregnancy [Unknown]
  - Drug dependence, antepartum [Unknown]
  - Off label use [Unknown]

NARRATIVE: CASE EVENT DATE: 202007
